FAERS Safety Report 13936913 (Version 3)
Quarter: 2017Q4

REPORT INFORMATION
  Report Type: Report from Study
  Country: US (occurrence: US)
  Receive Date: 20170905
  Receipt Date: 20171121
  Transmission Date: 20180320
  Serious: Yes (Hospitalization)
  Sender: FDA-Public Use
  Company Number: US-PFIZER INC-2017376779

PATIENT
  Age: 65 Year
  Sex: Female

DRUGS (2)
  1. TASIGNA [Suspect]
     Active Substance: NILOTINIB
     Dosage: UNK
  2. BOSULIF [Suspect]
     Active Substance: BOSUTINIB MONOHYDRATE
     Indication: ACUTE MYELOID LEUKAEMIA
     Dosage: 500 MG, DAILY (TAKE 1 TABLET BY MOUTH EVERY DAY WITH FOOD, SWALLOW WHOLE)
     Route: 048
     Dates: start: 201703

REACTIONS (4)
  - Diarrhoea [Recovered/Resolved]
  - Osteomyelitis [Recovered/Resolved]
  - Constipation [Unknown]
  - Appendicitis perforated [Recovered/Resolved]
